FAERS Safety Report 13418342 (Version 1)
Quarter: 2017Q2

REPORT INFORMATION
  Report Type: Spontaneous
  Country: US (occurrence: US)
  Receive Date: 20170406
  Receipt Date: 20170406
  Transmission Date: 20170830
  Serious: No
  Sender: FDA-Public Use
  Company Number: US-BAYER-2017-045098

PATIENT
  Sex: Male

DRUGS (1)
  1. NEXAVAR [Suspect]
     Active Substance: SORAFENIB
     Indication: HEPATOCELLULAR CARCINOMA
     Dosage: 200 MG, QD
     Route: 048
     Dates: start: 2016, end: 2016

REACTIONS (5)
  - Drug ineffective [None]
  - Off label use [None]
  - Blister [Recovered/Resolved]
  - Diarrhoea [Recovered/Resolved]
  - Skin discolouration [Recovered/Resolved]
